FAERS Safety Report 4654138-4 (Version None)
Quarter: 2005Q2

REPORT INFORMATION
  Report Type: 
  Country: None (occurrence: None)
  Receive Date: 20050504
  Receipt Date: 20050422
  Transmission Date: 20051028
  Serious: No
  Sender: FDA-Public Use
  Company Number: 213837

PATIENT
  Age: 18 Year
  Sex: Male
  Weight: 53.2 kg

DRUGS (4)
  1. NUTROPIN AQ [Suspect]
     Indication: UNEVALUABLE EVENT
     Dosage: 4.6 MG, QD, SUBCUTANEOUS
     Route: 058
     Dates: start: 20021105
  2. ALLEGRA [Concomitant]
  3. FORADIL (FORMOTROL FUMARATE) [Concomitant]
  4. SINGULAIR [Concomitant]

REACTIONS (1)
  - DIABETES MELLITUS INSULIN-DEPENDENT [None]
